FAERS Safety Report 7460275-1 (Version None)
Quarter: 2011Q2

REPORT INFORMATION
  Report Type: 
  Country: None (occurrence: None)
  Receive Date: 20110418
  Receipt Date: 20110406
  Transmission Date: 20111010
  Serious: Yes (Hospitalization, Other)
  Sender: FDA-Public Use
  Company Number: CA-145107

PATIENT
  Age: 29 Year
  Sex: Male
  Weight: 145 kg

DRUGS (3)
  1. WINRHO [Suspect]
  2. WINRHO [Suspect]
     Indication: IDIOPATHIC THROMBOCYTOPENIC PURPURA
     Dosage: (5000 ?G INTRAVENOUS)
     Route: 042
     Dates: start: 20081106, end: 20081106
  3. WINRHO [Suspect]
     Indication: IDIOPATHIC THROMBOCYTOPENIC PURPURA
     Dosage: (INTRAVENOUS)
     Route: 042
     Dates: start: 20081106, end: 20081106

REACTIONS (8)
  - DIZZINESS [None]
  - BACK PAIN [None]
  - HYPERHIDROSIS [None]
  - BODY TEMPERATURE INCREASED [None]
  - COUGH [None]
  - TACHYCARDIA [None]
  - DYSPNOEA [None]
  - CHILLS [None]
